FAERS Safety Report 7965417-7 (Version None)
Quarter: 2011Q4

REPORT INFORMATION
  Report Type: 
  Country: None (occurrence: None)
  Receive Date: 20111205
  Receipt Date: 20111123
  Transmission Date: 20120403
  Serious: Yes (Hospitalization, Disabling)
  Sender: FDA-Public Use
  Company Number: 2011MA016879

PATIENT
  Age: 39 Year
  Sex: Male

DRUGS (1)
  1. VENLAFAXINE HYDROCHLORIDE [Suspect]
     Indication: DEPRESSION
     Dosage: 75 MG; PO
     Route: 048
     Dates: start: 20110111, end: 20110206

REACTIONS (2)
  - ENTEROCOLITIS INFECTIOUS [None]
  - PANCREATITIS [None]
